FAERS Safety Report 12442003 (Version 1)
Quarter: 2016Q2

REPORT INFORMATION
  Report Type: Spontaneous
  Country: US (occurrence: US)
  Receive Date: 20160607
  Receipt Date: 20160607
  Transmission Date: 20160815
  Serious: No
  Sender: FDA-Public Use
  Company Number: US-VERTEX PHARMACEUTICALS-2016-003568

PATIENT
  Age: 15 Year
  Sex: Female

DRUGS (12)
  1. VANCOMYCIN [Concomitant]
     Active Substance: VANCOMYCIN
  2. ACETYLCYSTEIN [Concomitant]
     Active Substance: ACETYLCYSTEINE
  3. MOMETASONE [Concomitant]
     Active Substance: MOMETASONE
  4. MONTELUKAST [Concomitant]
     Active Substance: MONTELUKAST SODIUM
  5. CREON [Concomitant]
     Active Substance: PANCRELIPASE AMYLASE\PANCRELIPASE LIPASE\PANCRELIPASE PROTEASE
  6. LANTUS [Concomitant]
     Active Substance: INSULIN GLARGINE
  7. ALBUTEROL. [Concomitant]
     Active Substance: ALBUTEROL
     Route: 055
  8. SODIUM CHLORIDE. [Concomitant]
     Active Substance: SODIUM CHLORIDE
     Route: 055
  9. HUMALOG [Concomitant]
     Active Substance: INSULIN LISPRO
  10. BUPROPION HCL [Concomitant]
     Active Substance: BUPROPION HYDROCHLORIDE
  11. ORKAMBI [Suspect]
     Active Substance: IVACAFTOR\LUMACAFTOR
     Indication: CYSTIC FIBROSIS
     Dosage: 400-250 MG, BID
     Route: 048
  12. PULMOZYME [Concomitant]
     Active Substance: DORNASE ALFA

REACTIONS (1)
  - Gastrointestinal infection [Unknown]

NARRATIVE: CASE EVENT DATE: 201605
